FAERS Safety Report 7266068-2 (Version None)
Quarter: 2011Q1

REPORT INFORMATION
  Report Type: 
  Country: None (occurrence: None)
  Receive Date: 20110131
  Receipt Date: 20100406
  Transmission Date: 20110831
  Serious: No
  Sender: FDA-Public Use
  Company Number: PR-ABBOTT-10P-131-0637198-00

PATIENT
  Sex: Male

DRUGS (2)
  1. LUPRON DEPOT [Suspect]
     Indication: PRODUCT USED FOR UNKNOWN INDICATION
     Dates: end: 20060101
  2. LUPRON DEPOT [Suspect]
     Dates: start: 20091001

REACTIONS (3)
  - INJECTION SITE PAIN [None]
  - PAIN IN EXTREMITY [None]
  - HOT FLUSH [None]
